FAERS Safety Report 23127794 (Version 1)
Quarter: 2023Q4

REPORT INFORMATION
  Report Type: Other
  Country: CA (occurrence: None)
  Receive Date: 20231031
  Receipt Date: 20231031
  Transmission Date: 20240109
  Serious: Yes (Other)
  Sender: FDA-Public Use
  Company Number: CA-ROCHE-2035848

PATIENT
  Age: 36 Year
  Sex: Female

DRUGS (4)
  1. OCREVUS [Suspect]
     Active Substance: OCRELIZUMAB
     Indication: Relapsing-remitting multiple sclerosis
     Dosage: DOSE 2: 300 MG (REMAINING HALF DOSE), 2 WEEKS APART ON 15/DEC/2017?DOSE 3: 600 MG EVERY 6 MONTHS?SUB
     Route: 042
     Dates: start: 20171201
  2. ACETAMINOPHEN [Concomitant]
     Active Substance: ACETAMINOPHEN
     Dosage: ADMINISTRATION TIME: 08:15
     Route: 048
  3. BENADRYL [Concomitant]
     Active Substance: DIPHENHYDRAMINE HYDROCHLORIDE
     Dosage: ADMINISTRATION TIME: 08:15
     Route: 048
  4. METHYLPREDNISOLONE [Concomitant]
     Active Substance: METHYLPREDNISOLONE
     Dosage: 1.6 ML FROM THE 125 MG VIAL THEN MIX IN 100 ML OF NACL 0.9% IN 15 MINUTES?ADMINISTRATION TIME: START
     Route: 042

REACTIONS (13)
  - Erythema [Recovered/Resolved]
  - Rash [Recovered/Resolved]
  - Headache [Not Recovered/Not Resolved]
  - Fatigue [Recovering/Resolving]
  - Muscle fatigue [Recovering/Resolving]
  - Insomnia [Not Recovered/Not Resolved]
  - Sinusitis [Not Recovered/Not Resolved]
  - Cough [Recovering/Resolving]
  - Illness [Unknown]
  - Haemorrhage [Not Recovered/Not Resolved]
  - Vaginal polyp [Recovered/Resolved]
  - COVID-19 [Not Recovered/Not Resolved]
  - Infection [Unknown]

NARRATIVE: CASE EVENT DATE: 20171201
